FAERS Safety Report 12544151 (Version 1)
Quarter: 2016Q3

REPORT INFORMATION
  Report Type: Other
  Country: DE (occurrence: DE)
  Receive Date: 20160711
  Receipt Date: 20160711
  Transmission Date: 20161109
  Serious: Yes (Other)
  Sender: FDA-Public Use
  Company Number: DE-LUPIN PHARMACEUTICALS INC.-E2B_00005763

PATIENT
  Sex: Male
  Weight: 2.99 kg

DRUGS (2)
  1. LAMOTRIGIN [Suspect]
     Active Substance: LAMOTRIGINE
     Indication: EPILEPSY
     Dosage: 600 (MG/D)/ DOSAGE IN THE BEGINNING 4 X 150 MG/D
     Route: 063
  2. LAMOTRIGIN [Suspect]
     Active Substance: LAMOTRIGINE
     Dosage: 575 MG/D (150-125-150-150)
     Route: 063

REACTIONS (5)
  - Exposure during breast feeding [Unknown]
  - Eczema [Unknown]
  - Hepatic enzyme increased [Unknown]
  - Abdominal pain [Unknown]
  - Anticonvulsant drug level above therapeutic [Recovered/Resolved]
